FAERS Safety Report 12411509 (Version 1)
Quarter: 2016Q2

REPORT INFORMATION
  Report Type: Spontaneous
  Country: US (occurrence: None)
  Receive Date: 20160526
  Receipt Date: 20160526
  Transmission Date: 20160815
  Serious: Yes (Hospitalization)
  Sender: FDA-Public Use
  Company Number: None

PATIENT
  Age: 82 Year
  Sex: Female
  Weight: 83.92 kg

DRUGS (20)
  1. CYCLOBENZAPRINE [Concomitant]
     Active Substance: CYCLOBENZAPRINE
  2. ULTRAM [Concomitant]
     Active Substance: TRAMADOL HYDROCHLORIDE
  3. CLARINEX [Concomitant]
     Active Substance: DESLORATADINE
  4. ALPHAGAN P [Concomitant]
     Active Substance: BRIMONIDINE TARTRATE
  5. CARDIZEM HCT [Concomitant]
  6. TOPROL XL [Concomitant]
     Active Substance: METOPROLOL SUCCINATE
  7. BIOTIN [Concomitant]
     Active Substance: BIOTIN
  8. METOPROLOL SUCC ER [Concomitant]
     Active Substance: METOPROLOL SUCCINATE
  9. FOLIC ACID. [Concomitant]
     Active Substance: FOLIC ACID
  10. ECOTRIN [Concomitant]
     Active Substance: ASPIRIN
  11. GABAPENTIN. [Concomitant]
     Active Substance: GABAPENTIN
  12. NEXIUM [Concomitant]
     Active Substance: ESOMEPRAZOLE MAGNESIUM
  13. CRESTOR [Concomitant]
     Active Substance: ROSUVASTATIN CALCIUM
  14. LIDODERM [Concomitant]
     Active Substance: LIDOCAINE
  15. COLCRYS [Concomitant]
     Active Substance: COLCHICINE
  16. LYRICA [Concomitant]
     Active Substance: PREGABALIN
  17. NUCYNTA ER [Suspect]
     Active Substance: TAPENTADOL HYDROCHLORIDE
     Indication: BACK PAIN
     Dosage: 100 MG 2 PILLS EVERY 12 HRS, TWICE DAILY BY MOUTH
     Route: 048
     Dates: start: 20160104
  18. ALLOPURINOL. [Concomitant]
     Active Substance: ALLOPURINOL
  19. FUROSEMIDE. [Concomitant]
     Active Substance: FUROSEMIDE
  20. RHINOCORT [Concomitant]
     Active Substance: BUDESONIDE

REACTIONS (2)
  - Mental disorder [None]
  - Abnormal behaviour [None]

NARRATIVE: CASE EVENT DATE: 20160404
